FAERS Safety Report 4320828-6 (Version None)
Quarter: 2004Q1

REPORT INFORMATION
  Report Type: 
  Country: None (occurrence: None)
  Receive Date: 20040318
  Receipt Date: 20040312
  Transmission Date: 20041129
  Serious: Yes (Hospitalization)
  Sender: FDA-Public Use
  Company Number: GBWYE644316MAR04

PATIENT
  Age: 12 Year
  Sex: Female

DRUGS (1)
  1. MINOCIN [Suspect]
     Indication: ACNE
     Dosage: 100 MG, FREQUENCY UNKNOWN; ORAL
     Route: 048
     Dates: start: 20030101, end: 20040101

REACTIONS (1)
  - HEPATITIS CHOLESTATIC [None]
